FAERS Safety Report 19041513 (Version 2)
Quarter: 2021Q2

REPORT INFORMATION
  Report Type: Report from Study
  Country: JP (occurrence: JP)
  Receive Date: 20210322
  Receipt Date: 20210413
  Transmission Date: 20210717
  Serious: Yes (Hospitalization, Disabling)
  Sender: FDA-Public Use
  Company Number: JP-EISAI MEDICAL RESEARCH-EC-2020-081812

PATIENT
  Age: 16 Year
  Sex: Male
  Weight: 37 kg

DRUGS (66)
  1. INOVELON [Suspect]
     Active Substance: RUFINAMIDE
     Indication: PARTIAL SEIZURES
     Route: 048
     Dates: end: 20180626
  2. PHENOBAL [Suspect]
     Active Substance: PHENOBARBITAL
     Indication: EPILEPSY
     Route: 048
     Dates: start: 20200303, end: 20200412
  3. RIVOTRIL [Suspect]
     Active Substance: CLONAZEPAM
     Route: 048
     Dates: start: 20191007, end: 20191031
  4. VIMPAT [Suspect]
     Active Substance: LACOSAMIDE
     Route: 048
     Dates: start: 20190125, end: 20190207
  5. VIMPAT [Suspect]
     Active Substance: LACOSAMIDE
     Route: 048
     Dates: start: 20200629, end: 20200712
  6. VIMPAT [Suspect]
     Active Substance: LACOSAMIDE
     Route: 048
     Dates: start: 20200713, end: 20200715
  7. ESCRE [Concomitant]
     Active Substance: CHLORAL HYDRATE
     Indication: PARTIAL SEIZURES
     Route: 065
  8. ESCRE [Concomitant]
     Active Substance: CHLORAL HYDRATE
     Indication: EPILEPSY
  9. DIAPP [Concomitant]
     Active Substance: DIAZEPAM
     Indication: PARTIAL SEIZURES
     Route: 065
  10. FYCOMPA [Suspect]
     Active Substance: PERAMPANEL
     Route: 048
     Dates: start: 20200208, end: 20200423
  11. RIVOTRIL [Suspect]
     Active Substance: CLONAZEPAM
     Route: 048
     Dates: start: 20190125, end: 20190418
  12. RIVOTRIL [Suspect]
     Active Substance: CLONAZEPAM
     Route: 048
     Dates: start: 20190419, end: 20190519
  13. RIVOTRIL [Suspect]
     Active Substance: CLONAZEPAM
     Route: 048
     Dates: start: 20191115, end: 20191201
  14. RIVOTRIL [Suspect]
     Active Substance: CLONAZEPAM
     Route: 048
     Dates: start: 20191212, end: 20200325
  15. DAIKENCHUTO [Concomitant]
     Active Substance: HERBALS
     Route: 065
  16. EXCEGRAN [Suspect]
     Active Substance: ZONISAMIDE
     Route: 048
     Dates: start: 20200303, end: 20200412
  17. EXCEGRAN [Suspect]
     Active Substance: ZONISAMIDE
     Route: 048
     Dates: start: 20200425
  18. RIVOTRIL [Suspect]
     Active Substance: CLONAZEPAM
     Route: 048
     Dates: start: 20191101, end: 20191114
  19. RIVOTRIL [Suspect]
     Active Substance: CLONAZEPAM
     Route: 048
     Dates: start: 20200326, end: 20200331
  20. VIMPAT [Suspect]
     Active Substance: LACOSAMIDE
     Route: 048
     Dates: start: 20190323, end: 20190404
  21. MAGNESIUM OXIDE. [Concomitant]
     Active Substance: MAGNESIUM OXIDE
     Route: 065
  22. WAKOBITAL [Concomitant]
     Indication: PARTIAL SEIZURES
     Route: 065
  23. RIVOTRIL [Suspect]
     Active Substance: CLONAZEPAM
     Indication: PARTIAL SEIZURES
     Route: 048
     Dates: end: 20190110
  24. RIVOTRIL [Suspect]
     Active Substance: CLONAZEPAM
     Indication: EPILEPSY
     Route: 048
     Dates: start: 20190111, end: 20190124
  25. RIVOTRIL [Suspect]
     Active Substance: CLONAZEPAM
     Route: 048
     Dates: start: 20200618
  26. VIMPAT [Suspect]
     Active Substance: LACOSAMIDE
     Route: 048
     Dates: start: 20190405, end: 20200628
  27. LAC?B [Concomitant]
     Active Substance: BIFIDOBACTERIUM SPP.
     Route: 065
  28. TAMIFLU [Concomitant]
     Active Substance: OSELTAMIVIR PHOSPHATE
     Route: 065
  29. UNASYN [Concomitant]
     Active Substance: AMPICILLIN SODIUM\SULBACTAM SODIUM
     Indication: EPILEPSY
  30. FYCOMPA [Suspect]
     Active Substance: PERAMPANEL
     Indication: EPILEPSY
     Route: 048
     Dates: start: 20180807, end: 20180820
  31. FYCOMPA [Suspect]
     Active Substance: PERAMPANEL
     Route: 048
     Dates: start: 20180910, end: 20190603
  32. FYCOMPA [Suspect]
     Active Substance: PERAMPANEL
     Route: 048
     Dates: start: 20190906, end: 20200207
  33. INOVELON [Suspect]
     Active Substance: RUFINAMIDE
     Route: 048
     Dates: start: 20180718, end: 202005
  34. EXCEGRAN [Suspect]
     Active Substance: ZONISAMIDE
     Indication: PARTIAL SEIZURES
     Route: 048
     Dates: end: 20190716
  35. PHENOBAL [Suspect]
     Active Substance: PHENOBARBITAL
     Route: 048
     Dates: start: 20200413
  36. RIVOTRIL [Suspect]
     Active Substance: CLONAZEPAM
     Route: 048
     Dates: start: 20190712, end: 20190918
  37. VIMPAT [Suspect]
     Active Substance: LACOSAMIDE
     Route: 048
     Dates: start: 20190222, end: 20190307
  38. VIMPAT [Suspect]
     Active Substance: LACOSAMIDE
     Route: 048
     Dates: start: 20200716
  39. MALT EXTRACT [Concomitant]
     Route: 065
  40. MOVICOL [Concomitant]
     Active Substance: POLYETHYLENE GLYCOL 3350\POTASSIUM CHLORIDE\SODIUM BICARBONATE\SODIUM CHLORIDE
     Route: 065
  41. SUCRALFATE HYDRATE [Concomitant]
     Active Substance: SUCRALFATE
     Route: 065
  42. FYCOMPA [Suspect]
     Active Substance: PERAMPANEL
     Indication: PARTIAL SEIZURES
     Route: 048
     Dates: start: 20180724, end: 20180806
  43. INOVELON [Suspect]
     Active Substance: RUFINAMIDE
     Indication: EPILEPSY
     Route: 048
     Dates: start: 20180627, end: 20180717
  44. EXCEGRAN [Suspect]
     Active Substance: ZONISAMIDE
     Indication: EPILEPSY
     Route: 048
     Dates: start: 20190717, end: 20200302
  45. EXCEGRAN [Suspect]
     Active Substance: ZONISAMIDE
     Route: 048
     Dates: start: 20200413, end: 20200424
  46. RIVOTRIL [Suspect]
     Active Substance: CLONAZEPAM
     Route: 048
     Dates: start: 20190614, end: 20190627
  47. RIVOTRIL [Suspect]
     Active Substance: CLONAZEPAM
     Route: 048
     Dates: start: 20190919, end: 20191006
  48. RIVOTRIL [Suspect]
     Active Substance: CLONAZEPAM
     Route: 048
     Dates: start: 20200401, end: 20200427
  49. VIMPAT [Suspect]
     Active Substance: LACOSAMIDE
     Indication: EPILEPSY
     Route: 048
     Dates: start: 20181226, end: 20190124
  50. VIMPAT [Suspect]
     Active Substance: LACOSAMIDE
     Route: 048
     Dates: start: 20190208, end: 20190221
  51. LAXOBERON [Concomitant]
     Active Substance: SODIUM PICOSULFATE
     Route: 065
  52. MUCODYNE [Concomitant]
     Active Substance: CARBOCYSTEINE
     Route: 065
  53. TRICLORYL [Concomitant]
     Active Substance: TRICLOFOS SODIUM
     Route: 065
  54. RIVOTRIL [Suspect]
     Active Substance: CLONAZEPAM
     Route: 048
     Dates: start: 20190520, end: 20190613
  55. RIVOTRIL [Suspect]
     Active Substance: CLONAZEPAM
     Route: 048
     Dates: start: 20190628, end: 20190711
  56. VIMPAT [Suspect]
     Active Substance: LACOSAMIDE
     Indication: PARTIAL SEIZURES
     Route: 048
     Dates: start: 20181217, end: 20181225
  57. WAKOBITAL [Concomitant]
     Indication: EPILEPSY
  58. FYCOMPA [Suspect]
     Active Substance: PERAMPANEL
     Route: 048
     Dates: start: 20180821, end: 20180909
  59. FYCOMPA [Suspect]
     Active Substance: PERAMPANEL
     Route: 048
     Dates: start: 20190604, end: 20190905
  60. PHENOBAL [Suspect]
     Active Substance: PHENOBARBITAL
     Indication: PARTIAL SEIZURES
     Route: 048
     Dates: end: 20200302
  61. RIVOTRIL [Suspect]
     Active Substance: CLONAZEPAM
     Route: 048
     Dates: start: 20191202, end: 20191211
  62. VIMPAT [Suspect]
     Active Substance: LACOSAMIDE
     Route: 048
     Dates: start: 20190308, end: 20190322
  63. DIAPP [Concomitant]
     Active Substance: DIAZEPAM
     Indication: EPILEPSY
  64. PULLSMALIN R [Concomitant]
     Route: 065
  65. ANHIBA [Concomitant]
     Active Substance: ACETAMINOPHEN
     Route: 065
  66. UNASYN [Concomitant]
     Active Substance: AMPICILLIN SODIUM\SULBACTAM SODIUM
     Indication: PARTIAL SEIZURES
     Route: 065
     Dates: start: 20200402, end: 20200410

REACTIONS (2)
  - Dysphagia [Not Recovered/Not Resolved]
  - Status epilepticus [Recovered/Resolved]

NARRATIVE: CASE EVENT DATE: 202002
